FAERS Safety Report 18192689 (Version 1)
Quarter: 2020Q3

REPORT INFORMATION
  Report Type: Spontaneous
  Country: FR (occurrence: FR)
  Receive Date: 20200825
  Receipt Date: 20200825
  Transmission Date: 20201103
  Serious: Yes (Hospitalization, Other)
  Sender: FDA-Public Use
  Company Number: FR-BRISTOL-MYERS SQUIBB COMPANY-BMS-2020-067041

PATIENT
  Age: 59 Year
  Sex: Female

DRUGS (2)
  1. OPDIVO [Suspect]
     Active Substance: NIVOLUMAB
     Indication: METASTATIC MALIGNANT MELANOMA
     Dosage: UNK
     Route: 041
     Dates: start: 20200113
  2. YERVOY [Suspect]
     Active Substance: IPILIMUMAB
     Indication: METASTATIC MALIGNANT MELANOMA
     Dosage: 195 MILLIGRAM
     Route: 041
     Dates: start: 20200113, end: 20200203

REACTIONS (6)
  - Insulin-like growth factor abnormal [Not Recovered/Not Resolved]
  - Adrenal insufficiency [Recovered/Resolved with Sequelae]
  - Secondary hypothyroidism [Recovered/Resolved with Sequelae]
  - Headache [Recovered/Resolved]
  - Hypopituitarism [Not Recovered/Not Resolved]
  - Hypogonadism [Not Recovered/Not Resolved]

NARRATIVE: CASE EVENT DATE: 20200205
